FAERS Safety Report 6501469-9 (Version None)
Quarter: 2009Q4

REPORT INFORMATION
  Report Type: 
  Country: None (occurrence: None)
  Receive Date: 20091215
  Receipt Date: 20091215
  Transmission Date: 20100525
  Serious: Yes (Hospitalization)
  Sender: FDA-Public Use
  Company Number: None

PATIENT
  Age: 54 Year
  Sex: Female
  Weight: 80.2867 kg

DRUGS (7)
  1. COUMADIN [Suspect]
     Indication: PULMONARY EMBOLISM
     Dosage: 5MG DAILY PO
     Route: 048
     Dates: start: 20081210, end: 20090504
  2. PREMPRO [Concomitant]
  3. SYNTHROID [Concomitant]
  4. CELEXA [Concomitant]
  5. ACIPHEX [Concomitant]
  6. ATIVAN [Concomitant]
  7. TRAZODONE HCL [Concomitant]

REACTIONS (4)
  - DRUG TOXICITY [None]
  - HAEMATURIA [None]
  - HYPERCOAGULATION [None]
  - NEPHROLITHIASIS [None]
